FAERS Safety Report 11783288 (Version 2)
Quarter: 2015Q4

REPORT INFORMATION
  Report Type: Spontaneous
  Country: AT (occurrence: AT)
  Receive Date: 20151127
  Receipt Date: 20151203
  Transmission Date: 20160305
  Serious: Yes (Hospitalization)
  Sender: FDA-Public Use
  Company Number: AT-AMGEN-AUTSP2015113258

PATIENT
  Age: 54 Year
  Sex: Male
  Weight: 80 kg

DRUGS (13)
  1. PROCORALAN [Suspect]
     Active Substance: IVABRADINE
     Indication: CARDIAC FAILURE
     Dosage: 5 MG, BID
     Route: 048
     Dates: start: 2013, end: 201506
  2. RAPAMUNE [Concomitant]
     Active Substance: SIROLIMUS
     Dosage: 0.5 MG, DAILY
  3. MOLSIDOLAT [Concomitant]
     Dosage: 12 MG, DAILY
  4. PROCORALAN [Suspect]
     Active Substance: IVABRADINE
     Indication: SINUS TACHYCARDIA
     Dosage: 7.5 MG, BID
     Route: 048
     Dates: start: 201506, end: 20150810
  5. PLAVIX [Concomitant]
     Active Substance: CLOPIDOGREL BISULFATE
     Dosage: 75 MG, DAILY
  6. PANTOLOC                           /01263204/ [Concomitant]
     Active Substance: PANTOPRAZOLE SODIUM
     Dosage: 40 MG, DAILY
  7. THROMBO ASS [Concomitant]
     Active Substance: ASPIRIN
     Dosage: 100 MG, DAILY
  8. PREDNISOLONE ACETATE. [Concomitant]
     Active Substance: PREDNISOLONE ACETATE
     Dosage: 5 MG, DAILY
  9. LASIX [Concomitant]
     Active Substance: FUROSEMIDE
     Dosage: 40 MG, DAILY
  10. CONCOR [Concomitant]
     Active Substance: BISOPROLOL FUMARATE
     Dosage: 2.5 MG, DAILY
  11. ADVAGRAF [Concomitant]
     Active Substance: TACROLIMUS
     Dosage: 1 MG, DAILY
  12. SORTIS [Concomitant]
     Active Substance: ATORVASTATIN
     Dosage: 40 MG, DAILY
  13. ROCALTROL [Concomitant]
     Active Substance: CALCITRIOL
     Dosage: 0.25 MUG, DAILY

REACTIONS (4)
  - Angioplasty [Recovered/Resolved]
  - Bradycardia [Recovered/Resolved]
  - Atrioventricular block complete [Recovered/Resolved]
  - Syncope [Recovered/Resolved]

NARRATIVE: CASE EVENT DATE: 20140429
